FAERS Safety Report 16216040 (Version 3)
Quarter: 2019Q2

REPORT INFORMATION
  Report Type: Spontaneous
  Country: US (occurrence: US)
  Receive Date: 20190419
  Receipt Date: 20190531
  Transmission Date: 20190711
  Serious: No
  Sender: FDA-Public Use
  Company Number: US-ASTRAZENECA-2019SE47187

PATIENT
  Sex: Female
  Weight: 51.7 kg

DRUGS (1)
  1. SYMBICORT [Suspect]
     Active Substance: BUDESONIDE\FORMOTEROL FUMARATE DIHYDRATE
     Indication: INTERSTITIAL LUNG DISEASE
     Dosage: 160/4.5 MCG; 2 PUFFS TWO TIMES A DAY
     Route: 055
     Dates: start: 201902

REACTIONS (6)
  - Body height decreased [Unknown]
  - Device malfunction [Unknown]
  - Off label use [Unknown]
  - Neuralgia [Unknown]
  - Product use in unapproved indication [Unknown]
  - Intentional product misuse [Unknown]
